FAERS Safety Report 5424232-9 (Version None)
Quarter: 2007Q3

REPORT INFORMATION
  Report Type: 
  Country: None (occurrence: None)
  Receive Date: 20070823
  Receipt Date: 20070814
  Transmission Date: 20080115
  Serious: Yes (Other)
  Sender: FDA-Public Use
  Company Number: BE-PFIZER INC-2007067597

PATIENT
  Age: 42 Year
  Sex: Female

DRUGS (2)
  1. LINEZOLID [Suspect]
     Indication: STAPHYLOCOCCAL INFECTION
  2. ANTIHISTAMINES [Concomitant]

REACTIONS (3)
  - COORDINATION ABNORMAL [None]
  - NEUROPATHY PERIPHERAL [None]
  - VISUAL ACUITY REDUCED [None]
